FAERS Safety Report 5783468-8 (Version None)
Quarter: 2008Q2

REPORT INFORMATION
  Report Type: 
  Country: None (occurrence: None)
  Receive Date: 20080605
  Receipt Date: 20080318
  Transmission Date: 20081010
  Serious: No
  Sender: FDA-Public Use
  Company Number: A0716070A

PATIENT
  Age: 45 Year
  Sex: Female

DRUGS (1)
  1. ALLI [Suspect]
     Route: 048

REACTIONS (5)
  - ASTHENIA [None]
  - BEDRIDDEN [None]
  - FEELING HOT [None]
  - ILL-DEFINED DISORDER [None]
  - PAIN [None]
